FAERS Safety Report 10040580 (Version 1)
Quarter: 2014Q1

REPORT INFORMATION
  Report Type: Spontaneous
  Country: US (occurrence: None)
  Receive Date: 20140326
  Receipt Date: 20140326
  Transmission Date: 20141002
  Serious: Yes (Other)
  Sender: FDA-Public Use
  Company Number: None

PATIENT
  Age: 10 Month
  Sex: Female
  Weight: 8.5 kg

DRUGS (1)
  1. GAMMAGARD LIQUID [Suspect]
     Indication: KAWASAKI^S DISEASE
     Dosage: 2 G/KG INTRAVENOUS
     Route: 042
     Dates: start: 20140318, end: 20140319

REACTIONS (1)
  - Haemolysis [None]
